FAERS Safety Report 22322998 (Version 2)
Quarter: 2024Q1

REPORT INFORMATION
  Report Type: Spontaneous
  Country: US (occurrence: US)
  Receive Date: 20230516
  Receipt Date: 20240307
  Transmission Date: 20240410
  Serious: Yes (Other)
  Sender: FDA-Public Use
  Company Number: US-NOVOPROD-1063019

PATIENT
  Sex: Male
  Weight: 95.238 kg

DRUGS (2)
  1. FIASP [Suspect]
     Active Substance: INSULIN ASPART
     Indication: Type 1 diabetes mellitus
     Dosage: SLIDING SCALE(BETWEEN 5 AND 10 UNITS)
     Route: 058
  2. NOVOLOG [Suspect]
     Active Substance: INSULIN ASPART
     Indication: Product used for unknown indication
     Dosage: SLIDING SCALE (BETWEEN 10 AND 20 UNITS)
     Route: 058

REACTIONS (1)
  - Hepatic cirrhosis [Unknown]
